FAERS Safety Report 5940704-2 (Version None)
Quarter: 2008Q4

REPORT INFORMATION
  Report Type: 
  Country: None (occurrence: None)
  Receive Date: 20081104
  Receipt Date: 20081028
  Transmission Date: 20090506
  Serious: Yes (Other)
  Sender: FDA-Public Use
  Company Number: CA-ASTRAZENECA-2008UW24220

PATIENT

DRUGS (2)
  1. ATACAND [Suspect]
     Route: 048
  2. LOSEC MUPS [Suspect]
     Route: 048

REACTIONS (1)
  - MOUTH HAEMORRHAGE [None]
